FAERS Safety Report 8554429-0 (Version None)
Quarter: 2012Q3

REPORT INFORMATION
  Report Type: 
  Country: None (occurrence: None)
  Receive Date: 20120731
  Receipt Date: 20120723
  Transmission Date: 20120928
  Serious: Yes (Other)
  Sender: FDA-Public Use
  Company Number: US-009507513-1207USA010273

PATIENT

DRUGS (12)
  1. JANUMET [Suspect]
     Route: 048
  2. DIGOXIN [Suspect]
  3. ZINC (UNSPECIFIED) [Concomitant]
  4. COREG [Concomitant]
  5. GLYBURIDE [Concomitant]
  6. PACERONE [Suspect]
     Dosage: 200 MG, QD
     Route: 048
  7. LIPITOR [Concomitant]
  8. PACERONE [Suspect]
     Dosage: 400 MG, BID
     Route: 048
  9. CALCIUM (UNSPECIFIED) [Concomitant]
  10. CINNAMON [Concomitant]
  11. MAGNESIUM (UNSPECIFIED) [Concomitant]
  12. LISINOPRIL [Concomitant]

REACTIONS (10)
  - ABNORMAL DREAMS [None]
  - OPTIC NERVE INJURY [None]
  - SOMNOLENCE [None]
  - OPTIC NEUROPATHY [None]
  - OPTIC NERVE INFARCTION [None]
  - HALO VISION [None]
  - BLINDNESS [None]
  - HEADACHE [None]
  - NAUSEA [None]
  - DRUG INTOLERANCE [None]
